FAERS Safety Report 20444766 (Version 2)
Quarter: 2022Q2

REPORT INFORMATION
  Report Type: Spontaneous
  Country: US (occurrence: US)
  Receive Date: 20220208
  Receipt Date: 20220609
  Transmission Date: 20220721
  Serious: No
  Sender: FDA-Public Use
  Company Number: US-PFIZER INC-2019318778

PATIENT
  Age: 57 Year
  Sex: Female

DRUGS (2)
  1. XELJANZ XR [Suspect]
     Active Substance: TOFACITINIB CITRATE
     Dosage: 11 MG
     Dates: start: 20190405
  2. XELJANZ XR [Suspect]
     Active Substance: TOFACITINIB CITRATE
     Dosage: 11 MG, 1X/DAY, [ONCE DAILY AS PRESCRIBED]
     Dates: start: 20190222, end: 20190722

REACTIONS (4)
  - Skin discomfort [Unknown]
  - Alopecia [Unknown]
  - Skin atrophy [Unknown]
  - Illness [Unknown]
